FAERS Safety Report 4397622-3 (Version None)
Quarter: 2004Q3

REPORT INFORMATION
  Report Type: 
  Country: None (occurrence: None)
  Receive Date: 20040712
  Receipt Date: 20040621
  Transmission Date: 20050211
  Serious: Yes (Death, Hospitalization, Other)
  Sender: FDA-Public Use
  Company Number: JP_030400732

PATIENT
  Age: 64 Year
  Sex: Female
  Weight: 49 kg

DRUGS (1)
  1. GEMCITABINE HYDROCHLORIDE-IV (GEMCITABINE) [Suspect]
     Indication: NON-SMALL CELL LUNG CANCER
     Dosage: 1000 MG/M2/OTHER
     Route: 050
     Dates: start: 20020409, end: 20020709

REACTIONS (6)
  - ANAEMIA [None]
  - INTERSTITIAL LUNG DISEASE [None]
  - LUNG CANCER METASTATIC [None]
  - MALIGNANT NEOPLASM PROGRESSION [None]
  - PNEUMONITIS [None]
  - TRANSAMINASES INCREASED [None]
